FAERS Safety Report 8421521 (Version 3)
Quarter: 2013Q1

REPORT INFORMATION
  Report Type: Spontaneous
  Country: IE (occurrence: IE)
  Receive Date: 20120222
  Receipt Date: 20130305
  Transmission Date: 20140127
  Serious: Yes (Hospitalization, Other)
  Sender: FDA-Public Use
  Company Number: PHFR2012IE001275

PATIENT
  Age: 26 Year
  Sex: Male
  Weight: 107 kg

DRUGS (3)
  1. CLOZARIL [Suspect]
     Indication: SCHIZOPHRENIA
     Dosage: 375 MG, DAILY
     Route: 048
     Dates: start: 20120105
  2. ARIPIPRAZOLE [Concomitant]
     Indication: SCHIZOPHRENIA
     Dosage: 15 MG DAILY
     Dates: start: 2011
  3. HYOSCINE [Concomitant]
     Indication: SALIVARY HYPERSECRETION
     Dosage: 900 MG, UNK
     Route: 048
     Dates: start: 20120210, end: 201203

REACTIONS (5)
  - Gastritis [Recovered/Resolved]
  - Abdominal pain [Recovered/Resolved]
  - Vomiting [Recovered/Resolved]
  - Abdominal discomfort [Recovered/Resolved]
  - C-reactive protein increased [Recovered/Resolved]
